FAERS Safety Report 6137774-8 (Version None)
Quarter: 2009Q1

REPORT INFORMATION
  Report Type: 
  Country: None (occurrence: None)
  Receive Date: 20090326
  Receipt Date: 20090210
  Transmission Date: 20090719
  Serious: Yes (Death)
  Sender: FDA-Public Use
  Company Number: 2009AL001396

PATIENT
  Age: 56 Year
  Sex: Female

DRUGS (18)
  1. GABAPENTIN [Suspect]
     Indication: PAIN
     Dosage: 600 MG TID; PO
     Route: 048
     Dates: start: 20080401, end: 20080506
  2. VENLAFAXINE [Concomitant]
  3. RABEPRAZOLE SODIUM [Concomitant]
  4. BENDROFLUAZIDE [Concomitant]
  5. VALSARTAN [Concomitant]
  6. INFUMORPH [Concomitant]
  7. ORAMORPH SR [Concomitant]
  8. IBUPROFEN [Concomitant]
  9. NORETHINDRONE ACETATE [Concomitant]
  10. METOCLOPARAMIDE [Concomitant]
  11. TRAMADOL HCL [Concomitant]
  12. NULYTELY [Concomitant]
  13. GAVISCON [Concomitant]
  14. MICRALAX [Concomitant]
  15. AMITRIPTYLINE [Concomitant]
  16. MEGACE [Concomitant]
  17. CO-DANTHRAMER [Concomitant]
  18. INFUMORPH [Concomitant]

REACTIONS (12)
  - ACIDOSIS [None]
  - ALANINE AMINOTRANSFERASE INCREASED [None]
  - ASTERIXIS [None]
  - BLOOD ALKALINE PHOSPHATASE INCREASED [None]
  - BLOOD POTASSIUM ABNORMAL [None]
  - COAGULOPATHY [None]
  - FLUID OVERLOAD [None]
  - GAMMA-GLUTAMYLTRANSFERASE INCREASED [None]
  - GENERAL PHYSICAL HEALTH DETERIORATION [None]
  - HAEMOGLOBIN DECREASED [None]
  - HYPOTENSION [None]
  - RENAL FAILURE ACUTE [None]
